FAERS Safety Report 24167401 (Version 2)
Quarter: 2024Q3

REPORT INFORMATION
  Report Type: Report from Study
  Country: US (occurrence: US)
  Receive Date: 20240802
  Receipt Date: 20240802
  Transmission Date: 20241016
  Serious: Yes (Other)
  Sender: HRA PHARMA
  Company Number: US-ORG100014127-2024000219

PATIENT
  Age: 52 Year
  Sex: Male

DRUGS (11)
  1. LYSODREN [Suspect]
     Active Substance: MITOTANE
     Indication: Adrenal gland cancer
     Dosage: 500 MG; 2 TABLETS THREE TIMES DAILY
     Route: 048
     Dates: start: 20240305
  2. chlorthalid tab 25mg [Concomitant]
     Indication: Product used for unknown indication
  3. IBUPROFEN [Concomitant]
     Active Substance: IBUPROFEN
     Indication: Product used for unknown indication
  4. imitrex tab 100mg [Concomitant]
     Indication: Product used for unknown indication
  5. ONDANSETRON [Concomitant]
     Active Substance: ONDANSETRON
     Indication: Product used for unknown indication
  6. OXYCODONE [Concomitant]
     Active Substance: OXYCODONE
     Indication: Product used for unknown indication
  7. potassium chloride ER micro tab 20meq [Concomitant]
     Indication: Product used for unknown indication
  8. Prochlorper tab 10mg [Concomitant]
     Indication: Product used for unknown indication
  9. propranolol capsules 120mg ER [Concomitant]
     Indication: Product used for unknown indication
  10. qulipta tablets 60mg [Concomitant]
     Indication: Product used for unknown indication
  11. vraylar cap 4.5mg [Concomitant]
     Indication: Product used for unknown indication

REACTIONS (5)
  - Hypokalaemia [Not Recovered/Not Resolved]
  - Decreased appetite [Not Recovered/Not Resolved]
  - Diarrhoea [Not Recovered/Not Resolved]
  - Nausea [Not Recovered/Not Resolved]
  - Fatigue [Not Recovered/Not Resolved]
